FAERS Safety Report 6448917-0 (Version None)
Quarter: 2009Q4

REPORT INFORMATION
  Report Type: 
  Country: None (occurrence: None)
  Receive Date: 20091120
  Receipt Date: 20091117
  Transmission Date: 20100525
  Serious: Yes (Other)
  Sender: FDA-Public Use
  Company Number: A0818043A

PATIENT
  Age: 25 Year
  Sex: Male

DRUGS (1)
  1. ALLI [Suspect]
     Route: 048

REACTIONS (1)
  - SKIN ATROPHY [None]
